FAERS Safety Report 17139853 (Version 1)
Quarter: 2019Q4

REPORT INFORMATION
  Report Type: Spontaneous
  Country: SE (occurrence: SE)
  Receive Date: 20191211
  Receipt Date: 20191211
  Transmission Date: 20200122
  Serious: Yes (Hospitalization)
  Sender: FDA-Public Use
  Company Number: SE-TEVA-2019-SE-1148976

PATIENT
  Age: 22 Year
  Sex: Female

DRUGS (2)
  1. LERGIGAN [PROMETHAZINE HYDROCHLORIDE] [Suspect]
     Active Substance: PROMETHAZINE HYDROCHLORIDE
     Dosage: 20 TABLET
     Route: 048
     Dates: start: 20180403, end: 20180403
  2. DULOXETINE. [Suspect]
     Active Substance: DULOXETINE
     Dosage: 3600 MG
     Route: 048
     Dates: start: 20180403, end: 20180403

REACTIONS (4)
  - Intentional overdose [Unknown]
  - Formication [Unknown]
  - Akathisia [Unknown]
  - Intentional self-injury [Unknown]

NARRATIVE: CASE EVENT DATE: 20180403
